FAERS Safety Report 7338148-4 (Version None)
Quarter: 2011Q1

REPORT INFORMATION
  Report Type: 
  Country: None (occurrence: None)
  Receive Date: 20110303
  Receipt Date: 20110303
  Transmission Date: 20110831
  Serious: No
  Sender: FDA-Public Use
  Company Number: None

PATIENT
  Sex: Female
  Weight: 60.782 kg

DRUGS (2)
  1. LOESTRIN FE 1/20 [Suspect]
     Indication: CONTRACEPTION
     Dosage: 1 PILL ONCE DAILY PO
     Route: 048
     Dates: start: 20100315, end: 20100815
  2. LOESTRIN FE 1/20 [Suspect]
     Indication: PROPHYLAXIS
     Dosage: 1 PILL ONCE DAILY PO
     Route: 048
     Dates: start: 20100315, end: 20100815

REACTIONS (5)
  - FEAR [None]
  - SKIN STRIAE [None]
  - DEPRESSION [None]
  - WEIGHT INCREASED [None]
  - MOOD SWINGS [None]
